FAERS Safety Report 19759675 (Version 1)
Quarter: 2021Q3

REPORT INFORMATION
  Report Type: Spontaneous
  Country: AU (occurrence: AU)
  Receive Date: 20210830
  Receipt Date: 20210830
  Transmission Date: 20211014
  Serious: Yes (Other)
  Sender: FDA-Public Use
  Company Number: AU-JNJFOC-20210844700

PATIENT
  Age: 76 Year
  Sex: Female

DRUGS (2)
  1. PARACETAMOL [Suspect]
     Active Substance: ACETAMINOPHEN
     Indication: PRODUCT USED FOR UNKNOWN INDICATION
     Route: 065
  2. BEOVU [Suspect]
     Active Substance: BROLUCIZUMAB-DBLL
     Indication: NEOVASCULAR AGE-RELATED MACULAR DEGENERATION
     Dosage: PRE?FILLED SYRINGE
     Route: 031
     Dates: start: 20200818

REACTIONS (6)
  - Intraocular pressure increased [Unknown]
  - Choroidal effusion [Recovering/Resolving]
  - Injection site extravasation [Unknown]
  - Rash maculo-papular [Recovered/Resolved]
  - Fall [Unknown]
  - Hypotony of eye [Not Recovered/Not Resolved]

NARRATIVE: CASE EVENT DATE: 2020
